FAERS Safety Report 12643522 (Version 2)
Quarter: 2016Q3

REPORT INFORMATION
  Report Type: Spontaneous
  Country: IT (occurrence: IT)
  Receive Date: 20160811
  Receipt Date: 20160815
  Transmission Date: 20161109
  Serious: Yes (Life-Threatening, Hospitalization)
  Sender: FDA-Public Use
  Company Number: IT-TEVA-681339ACC

PATIENT
  Age: 54 Year
  Sex: Male

DRUGS (3)
  1. AMOXICILLIN W/CLAVULANIC ACID [Suspect]
     Active Substance: AMOXICILLIN\CLAVULANIC ACID
     Indication: NOCARDIOSIS
  2. AMOXICILLIN W/CLAVULANIC ACID [Suspect]
     Active Substance: AMOXICILLIN\CLAVULANIC ACID
     Indication: PNEUMONIA
     Dosage: 3 DOSAGE FORMS DAILY; ONE DOSAGE FORM= AMOXICILLIN 875 MG/ CLAVULANIC ACID 125 MG
     Route: 048
  3. LEVOFLOXACIN. [Suspect]
     Active Substance: LEVOFLOXACIN
     Indication: PNEUMONIA
     Dosage: 500 MILLIGRAM DAILY;
     Route: 048

REACTIONS (4)
  - Drug ineffective [Recovered/Resolved]
  - Brain abscess [Recovered/Resolved]
  - Off label use [Recovered/Resolved]
  - Disease progression [Recovered/Resolved]
